FAERS Safety Report 10149191 (Version 1)
Quarter: 2014Q2

REPORT INFORMATION
  Report Type: Spontaneous
  Country: US (occurrence: None)
  Receive Date: 20140501
  Receipt Date: 20140501
  Transmission Date: 20141212
  Serious: No
  Sender: FDA-Public Use
  Company Number: None

PATIENT
  Sex: Female
  Weight: 62.7 kg

DRUGS (1)
  1. FORTEO [Suspect]
     Indication: DRUG THERAPY
     Route: 058
     Dates: start: 20131119

REACTIONS (1)
  - Drug ineffective [None]
